FAERS Safety Report 9213936 (Version 1)
Quarter: 2013Q2

REPORT INFORMATION
  Report Type: Spontaneous
  Country: US (occurrence: US)
  Receive Date: 20130405
  Receipt Date: 20130405
  Transmission Date: 20140414
  Serious: No
  Sender: FDA-Public Use
  Company Number: US-PFIZER INC-2013104562

PATIENT
  Age: 60 Year
  Sex: Male
  Weight: 82 kg

DRUGS (2)
  1. ANTIVERT [Suspect]
     Indication: UPPER-AIRWAY COUGH SYNDROME
     Dosage: 25 MG, AS NEEDED
     Route: 048
     Dates: start: 2000
  2. ZANTAC [Concomitant]
     Dosage: 75 MG, UNK

REACTIONS (2)
  - Intentional drug misuse [Unknown]
  - Therapeutic response unexpected [Unknown]
